FAERS Safety Report 8146813-4 (Version None)
Quarter: 2012Q1

REPORT INFORMATION
  Report Type: 
  Country: None (occurrence: None)
  Receive Date: 20120217
  Receipt Date: 20111128
  Transmission Date: 20120608
  Serious: No
  Sender: FDA-Public Use
  Company Number: US-ABBOTT-11P-163-0877952-00

PATIENT
  Sex: Female
  Weight: 50.394 kg

DRUGS (9)
  1. MAGNESIUM OXIDE [Concomitant]
     Indication: MINERAL SUPPLEMENTATION
  2. ZETIA [Concomitant]
     Indication: BLOOD CHOLESTEROL INCREASED
  3. LEVOTHYROXINE SODIUM [Concomitant]
     Indication: HYPOTHYROIDISM
  4. CRESTOR [Concomitant]
     Indication: BLOOD CHOLESTEROL INCREASED
  5. AMBIEN [Concomitant]
     Indication: SLEEP DISORDER
  6. SIMCOR [Suspect]
     Indication: BLOOD CHOLESTEROL INCREASED
     Dates: start: 20111001, end: 20111001
  7. DIGOXIN [Concomitant]
     Indication: ATRIAL FIBRILLATION
  8. OXYBUTYNIN [Concomitant]
     Indication: HYPERTONIC BLADDER
  9. PROPRANOLOL [Concomitant]
     Indication: NEUROPATHY PERIPHERAL

REACTIONS (1)
  - FLUSHING [None]
